FAERS Safety Report 14187533 (Version 3)
Quarter: 2019Q3

REPORT INFORMATION
  Report Type: Report from Study
  Country: BR (occurrence: BR)
  Receive Date: 20171114
  Receipt Date: 20190715
  Transmission Date: 20191004
  Serious: Yes (Other)
  Sender: FDA-Public Use
  Company Number: BR-JNJFOC-20171111427

PATIENT
  Age: 45 Year
  Sex: Female
  Weight: 62 kg

DRUGS (2)
  1. SIMPONI [Suspect]
     Active Substance: GOLIMUMAB
     Indication: RHEUMATOID ARTHRITIS
     Route: 058
     Dates: start: 20160705, end: 201907
  2. METHOTREXATE. [Concomitant]
     Active Substance: METHOTREXATE
     Indication: PRODUCT USED FOR UNKNOWN INDICATION

REACTIONS (6)
  - Rheumatoid arthritis [Unknown]
  - Sepsis [Unknown]
  - Renal impairment [Not Recovered/Not Resolved]
  - Urine odour abnormal [Unknown]
  - Weight decreased [Unknown]
  - Drug ineffective [Unknown]
